FAERS Safety Report 5596148-9 (Version None)
Quarter: 2008Q1

REPORT INFORMATION
  Report Type: 
  Country: None (occurrence: None)
  Receive Date: 20080118
  Receipt Date: 20080111
  Transmission Date: 20080703
  Serious: Yes (Other)
  Sender: FDA-Public Use
  Company Number: BW-BOEHRINGER INGELHEIM PHARMACEUTICALS, INC.-2008-BP-00856BP

PATIENT
  Age: 21 Year
  Sex: Female

DRUGS (3)
  1. VIRAMUNE [Suspect]
     Indication: HIV INFECTION
     Route: 048
     Dates: start: 20071127
  2. COMBIVIR [Suspect]
     Indication: HIV INFECTION
     Route: 065
     Dates: start: 20071127
  3. COTRIMOXAZOLE [Concomitant]

REACTIONS (1)
  - INTRA-UTERINE DEATH [None]
